FAERS Safety Report 4666990-7 (Version None)
Quarter: 2005Q2

REPORT INFORMATION
  Report Type: 
  Country: None (occurrence: None)
  Receive Date: 20050518
  Receipt Date: 20040503
  Transmission Date: 20051028
  Serious: Yes (Other)
  Sender: FDA-Public Use
  Company Number: PHEH2004US02906

PATIENT
  Age: 19 Year
  Sex: Female
  Weight: 68.9 kg

DRUGS (2)
  1. TEGRETOL-XR [Suspect]
     Indication: EPILEPSY
     Dosage: SEE IMAGE
     Route: 048
     Dates: start: 19940101
  2. FOLATE SODIUM (FOLATE SODIUM) [Concomitant]

REACTIONS (11)
  - ANTIBODY TEST POSITIVE [None]
  - ARTHRALGIA [None]
  - CONVULSION [None]
  - DNA ANTIBODY POSITIVE [None]
  - FATIGUE [None]
  - HAEMATURIA [None]
  - LABORATORY TEST ABNORMAL [None]
  - LUPUS-LIKE SYNDROME [None]
  - MYALGIA [None]
  - PROTEINURIA [None]
  - WHITE BLOOD CELL COUNT DECREASED [None]
